FAERS Safety Report 10103339 (Version 1)
Quarter: 2014Q2

REPORT INFORMATION
  Report Type: Spontaneous
  Country: US (occurrence: US)
  Receive Date: 20140424
  Receipt Date: 20140424
  Transmission Date: 20141212
  Serious: No
  Sender: FDA-Public Use
  Company Number: US-BRISTOL-MYERS SQUIBB COMPANY-20298881

PATIENT
  Age: 75 Year
  Sex: Male
  Weight: 95.24 kg

DRUGS (9)
  1. ELIQUIS [Suspect]
     Dates: start: 201402
  2. BABY ASPIRIN [Concomitant]
  3. SIMVASTATIN [Concomitant]
  4. BUSPIRONE [Concomitant]
  5. TAMSULOSIN [Concomitant]
  6. METOPROLOL [Concomitant]
  7. ALPRAZOLAM [Concomitant]
  8. MULTIVITAMIN [Concomitant]
     Dosage: POWDER
  9. KRILL OIL [Concomitant]
     Dosage: CAPS

REACTIONS (1)
  - Neck pain [Unknown]
